FAERS Safety Report 23408876 (Version 1)
Quarter: 2024Q1

REPORT INFORMATION
  Report Type: Spontaneous
  Country: US (occurrence: None)
  Receive Date: 20240115
  Receipt Date: 20240115
  Transmission Date: 20240410
  Serious: Yes (Hospitalization)
  Sender: FDA-Public Use
  Company Number: None

PATIENT
  Age: 38 Year
  Sex: Male

DRUGS (8)
  1. IGALMI [Suspect]
     Active Substance: DEXMEDETOMIDINE
     Indication: Agitation
     Route: 060
     Dates: start: 20240110, end: 20240111
  2. RISPERDAL [Concomitant]
     Active Substance: RISPERIDONE
     Dates: start: 20240110, end: 20240113
  3. BENZTROPINE [Concomitant]
     Active Substance: BENZTROPINE
     Dates: start: 20240111, end: 20240113
  4. TYLENOL [Concomitant]
     Active Substance: ACETAMINOPHEN
     Dates: start: 20240111, end: 20240113
  5. ATIVAN [Concomitant]
     Active Substance: LORAZEPAM
     Dates: start: 20240111, end: 20240111
  6. BENADRYL [Concomitant]
     Active Substance: DIPHENHYDRAMINE HYDROCHLORIDE
     Dates: start: 20240111, end: 20240111
  7. GEODON [Concomitant]
     Active Substance: ZIPRASIDONE HYDROCHLORIDE\ZIPRASIDONE MESYLATE
     Dates: start: 20240111, end: 20240111
  8. HALDOL [Concomitant]
     Active Substance: HALOPERIDOL
     Dates: start: 20240111, end: 20240111

REACTIONS (1)
  - Neuroleptic malignant syndrome [None]

NARRATIVE: CASE EVENT DATE: 20240112
